FAERS Safety Report 8264440-5 (Version None)
Quarter: 2012Q2

REPORT INFORMATION
  Report Type: 
  Country: None (occurrence: None)
  Receive Date: 20120406
  Receipt Date: 20120404
  Transmission Date: 20120825
  Serious: No
  Sender: FDA-Public Use
  Company Number: US-PFIZER INC-2012086473

PATIENT
  Sex: Female
  Weight: 126 kg

DRUGS (4)
  1. LISINOPRIL [Concomitant]
     Indication: HYPERTENSION
     Dosage: UNK,TWO TABLETS DAILY IN MORNING, DAILY
  2. CHANTIX [Suspect]
     Indication: SMOKING CESSATION THERAPY
     Dosage: 0.5 MG, DAILY
     Dates: start: 20120315, end: 20120101
  3. CHANTIX [Suspect]
     Dosage: 1 MG, 2X/DAY
     Dates: start: 20120101
  4. CHANTIX [Suspect]
     Dosage: UNK
     Dates: start: 20120101, end: 20120101

REACTIONS (2)
  - ABNORMAL DREAMS [None]
  - INSOMNIA [None]
